FAERS Safety Report 15930756 (Version 1)
Quarter: 2019Q1

REPORT INFORMATION
  Report Type: Spontaneous
  Country: JP (occurrence: JP)
  Receive Date: 20190207
  Receipt Date: 20190207
  Transmission Date: 20190417
  Serious: Yes (Hospitalization, Other)
  Sender: FDA-Public Use
  Company Number: JP-ACCORD-105676

PATIENT
  Age: 75 Year
  Sex: Female
  Weight: 37 kg

DRUGS (10)
  1. CLOPIDOGREL [Suspect]
     Active Substance: CLOPIDOGREL BISULFATE
     Indication: ANTIPLATELET THERAPY
  2. ARGATROBAN. [Suspect]
     Active Substance: ARGATROBAN
     Indication: ANTICOAGULANT THERAPY
     Dosage: CONTINUOUS INFUSION
  3. ACETYLSALICYLIC ACID [Suspect]
     Active Substance: ASPIRIN
     Indication: ANTIPLATELET THERAPY
  4. FENTANYL. [Concomitant]
     Active Substance: FENTANYL
     Indication: INDUCTION OF ANAESTHESIA
  5. OXYGEN. [Concomitant]
     Active Substance: OXYGEN
     Indication: MAINTENANCE OF ANAESTHESIA
     Dosage: 42 %
     Route: 055
  6. ROCURONIUM/ROCURONIUM BROMIDE [Concomitant]
  7. NICARDIPINE [Concomitant]
     Active Substance: NICARDIPINE
     Dosage: CONTINUOUS INFUSION
  8. REMIFENTANIL/REMIFENTANIL HYDROCHLORIDE [Concomitant]
     Indication: MAINTENANCE OF ANAESTHESIA
     Dosage: 0.05-0.1 MICRO G/KG/MIN, 0.5 MICRO G/KG
  9. HEPARIN [Suspect]
     Active Substance: HEPARIN SODIUM
     Indication: ANTICOAGULANT THERAPY
     Route: 042
  10. PROPOFOL. [Concomitant]
     Active Substance: PROPOFOL
     Indication: INDUCTION OF ANAESTHESIA
     Dosage: 3.0 MICRO G/ML

REACTIONS (3)
  - Haemoglobin decreased [Recovering/Resolving]
  - Oesophageal intramural haematoma [Recovering/Resolving]
  - Blood pressure decreased [Recovering/Resolving]
